FAERS Safety Report 24068686 (Version 1)
Quarter: 2024Q3

REPORT INFORMATION
  Report Type: Spontaneous
  Country: DE (occurrence: DE)
  Receive Date: 20240710
  Receipt Date: 20240710
  Transmission Date: 20241017
  Serious: No
  Sender: ROCHE
  Company Number: DE-ROCHE-3498013

PATIENT
  Age: 76 Year
  Sex: Female
  Weight: 52.0 kg

DRUGS (2)
  1. VABYSMO [Suspect]
     Active Substance: FARICIMAB\FARICIMAB-SVOA
     Indication: Neovascular age-related macular degeneration
     Dosage: DOSE: 120 MG/ML
     Route: 050
     Dates: start: 20230808, end: 20231219
  2. VABYSMO [Suspect]
     Active Substance: FARICIMAB\FARICIMAB-SVOA
     Route: 050

REACTIONS (6)
  - Uveitis [Recovered/Resolved]
  - Eye irritation [Recovered/Resolved]
  - Iritis [Recovered/Resolved]
  - Iridocyclitis [Recovered/Resolved]
  - Uveitis [Recovered/Resolved]
  - Retinitis [Recovered/Resolved]

NARRATIVE: CASE EVENT DATE: 20240116
